FAERS Safety Report 24233040 (Version 1)
Quarter: 2024Q3

REPORT INFORMATION
  Report Type: Spontaneous
  Country: US (occurrence: US)
  Receive Date: 20240821
  Receipt Date: 20240821
  Transmission Date: 20241017
  Serious: Yes (Other)
  Sender: SANOFI AVENTIS
  Company Number: US-SA-SAC20240820001002

PATIENT
  Sex: Male
  Weight: 88.8 kg

DRUGS (4)
  1. DUPIXENT [Suspect]
     Active Substance: DUPILUMAB
     Indication: Chronic rhinosinusitis with nasal polyps
     Dosage: 300 MG QOW
     Route: 058
  2. KETOCONAZOLE [Concomitant]
     Active Substance: KETOCONAZOLE
  3. ACETAMINOPHEN AND CODEINE [Concomitant]
     Active Substance: ACETAMINOPHEN\CODEINE PHOSPHATE
  4. TRELEGY ELLIPTA [Concomitant]
     Active Substance: FLUTICASONE FUROATE\UMECLIDINIUM BROMIDE\VILANTEROL TRIFENATATE

REACTIONS (4)
  - NSAID exacerbated respiratory disease [Unknown]
  - Paranasal sinus discomfort [Unknown]
  - Eosinophil count increased [Unknown]
  - Dry eye [Unknown]
